FAERS Safety Report 15694428 (Version 1)
Quarter: 2018Q4

REPORT INFORMATION
  Report Type: Spontaneous
  Country: HK (occurrence: HK)
  Receive Date: 20181206
  Receipt Date: 20181206
  Transmission Date: 20190205
  Serious: Yes (Life-Threatening, Hospitalization)
  Sender: FDA-Public Use
  Company Number: HK-MYLANLABS-2018M1088448

PATIENT
  Age: 40 Year
  Sex: Female

DRUGS (1)
  1. NORETHISTERONE [Suspect]
     Active Substance: NORETHINDRONE
     Indication: POLYCYSTIC OVARIES
     Route: 048

REACTIONS (7)
  - Hepatic infarction [Recovered/Resolved]
  - Jejunal gangrene [Recovered/Resolved]
  - Gastrointestinal oedema [Recovered/Resolved]
  - Intestinal ischaemia [Recovered/Resolved]
  - Disease recurrence [Recovered/Resolved]
  - Portal vein thrombosis [Recovered/Resolved]
  - Mesenteric vein thrombosis [Recovered/Resolved]
